FAERS Safety Report 6672020-8 (Version None)
Quarter: 2010Q2

REPORT INFORMATION
  Report Type: 
  Country: None (occurrence: None)
  Receive Date: 20100407
  Receipt Date: 20100329
  Transmission Date: 20101027
  Serious: Yes (Other)
  Sender: FDA-Public Use
  Company Number: US-AMGEN-QUU402835

PATIENT
  Sex: Female

DRUGS (2)
  1. ENBREL [Suspect]
     Indication: PSORIATIC ARTHROPATHY
     Route: 058
     Dates: start: 20100221
  2. HYDROXYCHLOROQUINE SULFATE [Concomitant]

REACTIONS (7)
  - CONTUSION [None]
  - FALL [None]
  - HEAD INJURY [None]
  - LOSS OF PROPRIOCEPTION [None]
  - POST-TRAUMATIC HEADACHE [None]
  - RASH PRURITIC [None]
  - TRANSIENT ISCHAEMIC ATTACK [None]
